FAERS Safety Report 6795464-2 (Version None)
Quarter: 2010Q2

REPORT INFORMATION
  Report Type: 
  Country: None (occurrence: None)
  Receive Date: 20100520
  Receipt Date: 20090713
  Transmission Date: 20101027
  Serious: Yes (Other)
  Sender: FDA-Public Use
  Company Number: 2009240080

PATIENT
  Age: 61 Year
  Sex: Female
  Weight: 140 kg

DRUGS (5)
  1. PROVERA [Suspect]
     Indication: HORMONE REPLACEMENT THERAPY
     Dosage: ORAL
     Route: 048
     Dates: start: 19910101, end: 20020101
  2. PREMARIN [Suspect]
     Indication: HORMONE REPLACEMENT THERAPY
     Dates: start: 19910101, end: 20020101
  3. WELLBUTRIN [Concomitant]
  4. ZYRTEC (CETIRIZINE HYDROXHLORIDE) [Concomitant]
  5. DETROL LA [Concomitant]

REACTIONS (1)
  - BREAST CANCER FEMALE [None]
